FAERS Safety Report 6221275-2 (Version None)
Quarter: 2009Q2

REPORT INFORMATION
  Report Type: 
  Country: None (occurrence: None)
  Receive Date: 20090610
  Receipt Date: 20090605
  Transmission Date: 20091009
  Serious: Yes (Hospitalization)
  Sender: FDA-Public Use
  Company Number: CO-ASTRAZENECA-2009UW14668

PATIENT
  Age: 51 Year
  Sex: Male

DRUGS (6)
  1. SEROQUEL [Suspect]
     Indication: BIPOLAR DISORDER
     Route: 048
     Dates: start: 20090219
  2. SEROQUEL [Suspect]
     Route: 048
     Dates: start: 20090221
  3. MIRTAZAPINE [Concomitant]
     Indication: BIPOLAR DISORDER
     Route: 048
     Dates: start: 20090201
  4. TRAZODONE HCL [Concomitant]
     Indication: BIPOLAR DISORDER
     Route: 048
     Dates: start: 20090201
  5. LEVOPROMAZIN [Concomitant]
     Indication: BIPOLAR DISORDER
     Route: 048
     Dates: start: 20090201
  6. WARFARIN SODIUM [Concomitant]
     Indication: DEEP VEIN THROMBOSIS

REACTIONS (1)
  - GASTROINTESTINAL HAEMORRHAGE [None]
